FAERS Safety Report 4481286-4 (Version None)
Quarter: 2004Q4

REPORT INFORMATION
  Report Type: 
  Country: None (occurrence: None)
  Receive Date: 20041021
  Receipt Date: 20040907
  Transmission Date: 20050328
  Serious: Yes (Other)
  Sender: FDA-Public Use
  Company Number: PHBS2004JP11943

PATIENT
  Sex: Male

DRUGS (7)
  1. LOCHOL [Suspect]
     Dosage: 20 MG/DAY
     Route: 048
     Dates: start: 20031001
  2. LOCHOL [Suspect]
     Dosage: 10 MG/DAY
     Route: 048
     Dates: end: 20041001
  3. NATEGLINIDE [Concomitant]
     Indication: DIABETIC NEPHROPATHY
     Route: 048
  4. GLUCOBAY [Concomitant]
     Indication: DIABETIC NEPHROPATHY
     Route: 048
  5. MICARDIS [Concomitant]
     Indication: HYPERTENSION
     Route: 048
     Dates: start: 20031001, end: 20040701
  6. NOVAROK [Concomitant]
     Route: 048
     Dates: start: 20040701
  7. TANATRIL [Suspect]
     Indication: DIABETIC NEPHROPATHY
     Route: 048
     Dates: start: 20030101

REACTIONS (3)
  - BLOOD CREATINE PHOSPHOKINASE INCREASED [None]
  - BLOOD CREATINE PHOSPHOKINASE MB INCREASED [None]
  - MYOGLOBIN URINE PRESENT [None]
